FAERS Safety Report 7407514-0 (Version None)
Quarter: 2011Q2

REPORT INFORMATION
  Report Type: 
  Country: None (occurrence: None)
  Receive Date: 20110412
  Receipt Date: 20110401
  Transmission Date: 20111010
  Serious: Yes (Hospitalization, Other)
  Sender: FDA-Public Use
  Company Number: ES-BIOGENIDEC-2011BI011450

PATIENT
  Age: 45 Year
  Sex: Male

DRUGS (7)
  1. MODAFINIL [Concomitant]
  2. LEVITRA [Concomitant]
  3. LEVEMIR [Concomitant]
  4. INSULIN [Concomitant]
     Indication: TYPE 2 DIABETES MELLITUS
  5. IMUREL [Concomitant]
  6. ASPIRIN [Concomitant]
  7. TYSABRI [Suspect]
     Indication: MULTIPLE SCLEROSIS
     Route: 042
     Dates: start: 20080501, end: 20100601

REACTIONS (3)
  - PROGRESSIVE MULTIFOCAL LEUKOENCEPHALOPATHY [None]
  - MULTIPLE SCLEROSIS RELAPSE [None]
  - PROGRESSIVE MULTIPLE SCLEROSIS [None]
